FAERS Safety Report 25023025 (Version 1)
Quarter: 2025Q1

REPORT INFORMATION
  Report Type: Spontaneous
  Country: FR (occurrence: FR)
  Receive Date: 20250228
  Receipt Date: 20250228
  Transmission Date: 20250408
  Serious: Yes (Other)
  Sender: MYLAN
  Company Number: None

PATIENT
  Age: 20 Year
  Sex: Female

DRUGS (12)
  1. PREGABALIN [Suspect]
     Active Substance: PREGABALIN
     Indication: Neuralgia
     Dosage: 375 MILLIGRAM, QD
     Dates: start: 20241123
  2. PREGABALIN [Suspect]
     Active Substance: PREGABALIN
     Dosage: 375 MILLIGRAM, QD
     Route: 048
     Dates: start: 20241123
  3. PREGABALIN [Suspect]
     Active Substance: PREGABALIN
     Dosage: 375 MILLIGRAM, QD
     Route: 048
     Dates: start: 20241123
  4. PREGABALIN [Suspect]
     Active Substance: PREGABALIN
     Dosage: 375 MILLIGRAM, QD
     Dates: start: 20241123
  5. ACUPAN [Suspect]
     Active Substance: NEFOPAM HYDROCHLORIDE
     Indication: Pain
     Dosage: 2 MILLIGRAM, QH
     Dates: start: 20241122, end: 20241203
  6. ACUPAN [Suspect]
     Active Substance: NEFOPAM HYDROCHLORIDE
     Dosage: 2 MILLIGRAM, QH
     Route: 042
     Dates: start: 20241122, end: 20241203
  7. ACUPAN [Suspect]
     Active Substance: NEFOPAM HYDROCHLORIDE
     Dosage: 2 MILLIGRAM, QH
     Route: 042
     Dates: start: 20241122, end: 20241203
  8. ACUPAN [Suspect]
     Active Substance: NEFOPAM HYDROCHLORIDE
     Dosage: 2 MILLIGRAM, QH
     Dates: start: 20241122, end: 20241203
  9. PIPERACILLIN SODIUM\TAZOBACTAM SODIUM [Suspect]
     Active Substance: PIPERACILLIN SODIUM\TAZOBACTAM SODIUM
     Indication: Staphylococcal infection
     Dosage: 1 DOSAGE FORM, Q8H
     Dates: start: 20241128, end: 20241206
  10. PIPERACILLIN SODIUM\TAZOBACTAM SODIUM [Suspect]
     Active Substance: PIPERACILLIN SODIUM\TAZOBACTAM SODIUM
     Dosage: 1 DOSAGE FORM, Q8H
     Route: 042
     Dates: start: 20241128, end: 20241206
  11. PIPERACILLIN SODIUM\TAZOBACTAM SODIUM [Suspect]
     Active Substance: PIPERACILLIN SODIUM\TAZOBACTAM SODIUM
     Dosage: 1 DOSAGE FORM, Q8H
     Route: 042
     Dates: start: 20241128, end: 20241206
  12. PIPERACILLIN SODIUM\TAZOBACTAM SODIUM [Suspect]
     Active Substance: PIPERACILLIN SODIUM\TAZOBACTAM SODIUM
     Dosage: 1 DOSAGE FORM, Q8H
     Dates: start: 20241128, end: 20241206

REACTIONS (1)
  - Seizure [Recovered/Resolved]

NARRATIVE: CASE EVENT DATE: 20241130
